FAERS Safety Report 5387762-4 (Version None)
Quarter: 2007Q3

REPORT INFORMATION
  Report Type: 
  Country: None (occurrence: None)
  Receive Date: 20070716
  Receipt Date: 20070711
  Transmission Date: 20080115
  Serious: Yes (Other)
  Sender: FDA-Public Use
  Company Number: D0053953A

PATIENT

DRUGS (1)
  1. SEROXAT [Suspect]
     Dosage: 40MG PER DAY
     Route: 048
     Dates: start: 20050101

REACTIONS (1)
  - PEMPHIGOID [None]
